FAERS Safety Report 17561329 (Version 1)
Quarter: 2020Q1

REPORT INFORMATION
  Report Type: Spontaneous
  Country: US (occurrence: US)
  Receive Date: 20200319
  Receipt Date: 20200319
  Transmission Date: 20200409
  Serious: No
  Sender: FDA-Public Use
  Company Number: US-ADAMAS PHARMA, LLC-2020ADA00156

PATIENT
  Sex: Male
  Weight: 61.22 kg

DRUGS (8)
  1. GOCOVRI [Suspect]
     Active Substance: AMANTADINE
     Indication: DYSKINESIA
     Dosage: 137 MG, 1X/DAY AT BEDTIME
     Route: 048
     Dates: start: 20200108, end: 202001
  2. OMEPRAZOLE. [Concomitant]
     Active Substance: OMEPRAZOLE
  3. GOCOVRI [Suspect]
     Active Substance: AMANTADINE
     Dosage: UKNOWN DOSE AT BEDTIME
     Route: 048
  4. JARDIANCE [Concomitant]
     Active Substance: EMPAGLIFLOZIN
  5. FREESTYLE [Concomitant]
  6. AMANTADINE. [Concomitant]
     Active Substance: AMANTADINE HYDROCHLORIDE
  7. METFORMIN [Concomitant]
     Active Substance: METFORMIN HYDROCHLORIDE
  8. RYTARY [Concomitant]
     Active Substance: CARBIDOPA\LEVODOPA

REACTIONS (2)
  - Fall [Not Recovered/Not Resolved]
  - Balance disorder [Recovering/Resolving]
